FAERS Safety Report 4885432-X (Version None)
Quarter: 2005Q4

REPORT INFORMATION
  Report Type: 
  Country: None (occurrence: None)
  Receive Date: 20051220
  Receipt Date: 20041210
  Transmission Date: 20060501
  Serious: Yes (Hospitalization, Other)
  Sender: FDA-Public Use
  Company Number: HQWYE943513DEC04

PATIENT
  Age: 33 Year
  Sex: Male
  Weight: 90.8 kg

DRUGS (1)
  1. EFFEXOR XR [Suspect]
     Indication: BIPOLAR DISORDER
     Dosage: 75 MG 1X PER 1 DAY, ORAL
     Route: 048
     Dates: start: 20030422, end: 20030101

REACTIONS (1)
  - SUICIDE ATTEMPT [None]
